FAERS Safety Report 6271040-5 (Version None)
Quarter: 2009Q3

REPORT INFORMATION
  Report Type: 
  Country: None (occurrence: None)
  Receive Date: 20090716
  Receipt Date: 20090707
  Transmission Date: 20100115
  Serious: Yes (Hospitalization, Other)
  Sender: FDA-Public Use
  Company Number: US-PURDUE-USA_2008_0034696

PATIENT
  Sex: Male

DRUGS (2)
  1. OXYCONTIN [Suspect]
     Indication: BACK PAIN
     Dosage: 40 MG, BID
     Route: 048
  2. OXYCONTIN [Suspect]
     Dosage: 20 MG, BID
     Route: 048
     Dates: end: 20061001

REACTIONS (12)
  - ANHEDONIA [None]
  - ANXIETY [None]
  - DEPRESSION [None]
  - DISABILITY [None]
  - DRUG DEPENDENCE [None]
  - DRUG EFFECT DECREASED [None]
  - DRUG INEFFECTIVE [None]
  - DRUG WITHDRAWAL SYNDROME [None]
  - HYPERHIDROSIS [None]
  - INJURY [None]
  - PAIN [None]
  - SUICIDAL IDEATION [None]
